FAERS Safety Report 7985599-0 (Version None)
Quarter: 2011Q4

REPORT INFORMATION
  Report Type: 
  Country: None (occurrence: None)
  Receive Date: 20111216
  Receipt Date: 20111209
  Transmission Date: 20120403
  Serious: Yes (Hospitalization, Other)
  Sender: FDA-Public Use
  Company Number: US-ABBOTT-11P-163-0883110-00

PATIENT
  Age: 46 Year
  Sex: Male

DRUGS (1)
  1. HUMIRA [Suspect]
     Indication: CROHN'S DISEASE
     Dates: start: 20111108, end: 20111108

REACTIONS (7)
  - MALAISE [None]
  - ABDOMINAL PAIN [None]
  - INTESTINAL OBSTRUCTION [None]
  - ADVERSE REACTION [None]
  - NAUSEA [None]
  - PYREXIA [None]
  - POUCHITIS [None]
